FAERS Safety Report 4425186-4 (Version None)
Quarter: 2004Q3

REPORT INFORMATION
  Report Type: 
  Country: None (occurrence: None)
  Receive Date: 20040812
  Receipt Date: 20040812
  Transmission Date: 20050211
  Serious: Yes (Hospitalization)
  Sender: FDA-Public Use
  Company Number: None

PATIENT
  Age: 61 Year
  Sex: Male
  Weight: 194.7 kg

DRUGS (10)
  1. WARFARIN SODIUM [Suspect]
     Indication: ATRIAL FIBRILLATION
     Dosage: 10 MG/12.5 MG MOTU,OTHER ORAL
     Route: 048
  2. ASPIRIN [Suspect]
     Dosage: 325 MG DAILY ORAL
     Route: 048
  3. ALLOPRUINOL [Concomitant]
  4. FOSINOPRIL SODIUM [Concomitant]
  5. INSULIN [Concomitant]
  6. METFORMIN HCL [Concomitant]
  7. METOPROLOL [Concomitant]
  8. NITROGLYCERIN [Concomitant]
  9. ROSIGLITAZONE [Concomitant]
  10. SIMVASTATIN [Concomitant]

REACTIONS (3)
  - BLOOD URINE [None]
  - GINGIVAL BLEEDING [None]
  - INTERNATIONAL NORMALISED RATIO INCREASED [None]
